FAERS Safety Report 8585255-4 (Version None)
Quarter: 2012Q3

REPORT INFORMATION
  Report Type: 
  Country: None (occurrence: None)
  Receive Date: 20120810
  Receipt Date: 20120807
  Transmission Date: 20120928
  Serious: Yes (Hospitalization, Other)
  Sender: FDA-Public Use
  Company Number: US-009507513-1201USA02557

PATIENT

DRUGS (4)
  1. FOSAMAX [Suspect]
     Dosage: 70 MG, QW
     Route: 048
     Dates: start: 20021201, end: 20070501
  2. FOSAMAX [Suspect]
     Indication: OSTEOPENIA
     Dosage: 10 MG, QD
     Route: 048
     Dates: start: 19960401, end: 20021101
  3. FOSAMAX [Suspect]
     Dosage: 70 MG, QW
     Route: 048
     Dates: start: 20080206
  4. MK-9278 [Concomitant]
     Dosage: UNK UNK, QD
     Dates: start: 19960101

REACTIONS (49)
  - ARTHRALGIA [None]
  - HYPERTHYROIDISM [None]
  - ATROPHY [None]
  - CONSTIPATION [None]
  - CHRONIC OBSTRUCTIVE PULMONARY DISEASE [None]
  - CATARACT [None]
  - FRACTURE DELAYED UNION [None]
  - VITAMIN D DEFICIENCY [None]
  - CERVICAL DYSPLASIA [None]
  - ADVERSE EVENT [None]
  - PAIN [None]
  - FALLOPIAN TUBE DISORDER [None]
  - BRONCHITIS CHRONIC [None]
  - INCREASED TENDENCY TO BRUISE [None]
  - NAUSEA [None]
  - OSTEOARTHRITIS [None]
  - ADVERSE DRUG REACTION [None]
  - INSOMNIA [None]
  - NOCTURIA [None]
  - PAIN IN EXTREMITY [None]
  - SINUS TACHYCARDIA [None]
  - ARTHROPATHY [None]
  - LIVER FUNCTION TEST ABNORMAL [None]
  - NEPHROLITHIASIS [None]
  - UTERINE DISORDER [None]
  - BODY HEIGHT DECREASED [None]
  - UTERINE STENOSIS [None]
  - BLOOD UREA INCREASED [None]
  - VOMITING [None]
  - MUSCULOSKELETAL PAIN [None]
  - GASTROENTERITIS [None]
  - ARTHRITIS [None]
  - HYPERTENSION [None]
  - SINUS CONGESTION [None]
  - OVARIAN CYST [None]
  - RADICULITIS CERVICAL [None]
  - HEADACHE [None]
  - CERVICOBRACHIAL SYNDROME [None]
  - BACK PAIN [None]
  - HYPOTHYROIDISM [None]
  - FALL [None]
  - STRESS [None]
  - LIPASE INCREASED [None]
  - DIARRHOEA [None]
  - JOINT EFFUSION [None]
  - FEMUR FRACTURE [None]
  - LOW TURNOVER OSTEOPATHY [None]
  - HEPATITIS TOXIC [None]
  - SKIN LESION [None]
